FAERS Safety Report 14241089 (Version 1)
Quarter: 2017Q4

REPORT INFORMATION
  Report Type: Spontaneous
  Country: US (occurrence: US)
  Receive Date: 20171130
  Receipt Date: 20171130
  Transmission Date: 20180321
  Serious: No
  Sender: FDA-Public Use
  Company Number: US-LEADIANT BIOSCIENCES INC-2017STPI000451

PATIENT
  Sex: Female

DRUGS (5)
  1. ESZOPICLONE. [Concomitant]
     Active Substance: ESZOPICLONE
  2. ESTRADIOL. [Concomitant]
     Active Substance: ESTRADIOL
  3. FENOBRATE [Concomitant]
     Active Substance: FENOFIBRATE
  4. MATULANE [Suspect]
     Active Substance: PROCARBAZINE HYDROCHLORIDE
     Indication: BRAIN NEOPLASM MALIGNANT
     Dosage: 100 MG, QD
     Route: 048
     Dates: start: 20161015
  5. ATORVASTATIN [Concomitant]
     Active Substance: ATORVASTATIN

REACTIONS (1)
  - Fatigue [Not Recovered/Not Resolved]
